FAERS Safety Report 4776557-8 (Version None)
Quarter: 2005Q3

REPORT INFORMATION
  Report Type: 
  Country: None (occurrence: None)
  Receive Date: 20050915
  Receipt Date: 20050902
  Transmission Date: 20060218
  Serious: Yes (Hospitalization)
  Sender: FDA-Public Use
  Company Number: 2005122735

PATIENT
  Age: 55 Year
  Sex: Female

DRUGS (1)
  1. SORTIS (ATORVASTATIN) [Suspect]
     Indication: TYPE IIA HYPERLIPIDAEMIA
     Dosage: 80 MG (1 IN 1 D), ORAL
     Route: 048

REACTIONS (2)
  - PIGMENT NEPHROPATHY [None]
  - TRANSAMINASES INCREASED [None]
